FAERS Safety Report 9156936 (Version 4)
Quarter: 2013Q3

REPORT INFORMATION
  Report Type: Spontaneous
  Country: BR (occurrence: BR)
  Receive Date: 20130312
  Receipt Date: 20130705
  Transmission Date: 20140515
  Serious: Yes (Other)
  Sender: FDA-Public Use
  Company Number: PHHY2013BR021955

PATIENT
  Sex: Female
  Weight: 84 kg

DRUGS (3)
  1. TEGRETOL CR [Suspect]
     Indication: CONVULSION
     Dosage: 2 DF, DAILY
     Route: 048
  2. CARBAMAZEPINE [Suspect]
     Dosage: UNK UKN, UNK
     Dates: start: 201303
  3. GLUCOSAMINE [Concomitant]
     Dosage: 1 DF, A DAY
     Route: 048

REACTIONS (13)
  - Cerebral disorder [Unknown]
  - Osteoarthritis [Not Recovered/Not Resolved]
  - Gait disturbance [Recovering/Resolving]
  - Vasodilatation [Recovering/Resolving]
  - Arthritis [Recovering/Resolving]
  - Hypothyroidism [Recovering/Resolving]
  - Malaise [Unknown]
  - Abnormal behaviour [Unknown]
  - Depression [Recovering/Resolving]
  - Hypertension [Recovering/Resolving]
  - Epilepsy [Recovering/Resolving]
  - Dizziness [Unknown]
  - Convulsion [Recovered/Resolved]
